FAERS Safety Report 15231095 (Version 1)
Quarter: 2018Q3

REPORT INFORMATION
  Report Type: Spontaneous
  Country: DE (occurrence: DE)
  Receive Date: 20180802
  Receipt Date: 20180802
  Transmission Date: 20181010
  Serious: Yes (Other)
  Sender: FDA-Public Use
  Company Number: DE-ASTRAZENECA-2018SE96938

PATIENT
  Sex: Female

DRUGS (1)
  1. FASENRA [Suspect]
     Active Substance: BENRALIZUMAB
     Indication: ASTHMA
     Dosage: ONCE/SINGLE ADMINISTRATION
     Route: 058
     Dates: start: 20180725, end: 20180725

REACTIONS (5)
  - Headache [Unknown]
  - Sinus pain [Unknown]
  - Immune-mediated adverse reaction [Recovered/Resolved]
  - Pain in jaw [Unknown]
  - Photosensitivity reaction [Unknown]

NARRATIVE: CASE EVENT DATE: 20180725
